FAERS Safety Report 5397582-2 (Version None)
Quarter: 2007Q3

REPORT INFORMATION
  Report Type: 
  Country: None (occurrence: None)
  Receive Date: 20070726
  Receipt Date: 20070719
  Transmission Date: 20080115
  Serious: Yes (Death)
  Sender: FDA-Public Use
  Company Number: US-ROCHE-507794

PATIENT
  Age: 83 Year
  Sex: Female

DRUGS (1)
  1. XELODA [Suspect]
     Indication: COLORECTAL CANCER
     Dosage: THE THERAPY WITH CAPECITABINE WAS ONGOING AT THE TIME OF DEATH.
     Route: 065
     Dates: end: 20061231

REACTIONS (12)
  - ABDOMINAL PAIN UPPER [None]
  - AGEUSIA [None]
  - ANOREXIA [None]
  - BACK PAIN [None]
  - DEATH [None]
  - DIZZINESS [None]
  - FALL [None]
  - FATIGUE [None]
  - INSOMNIA [None]
  - PYREXIA [None]
  - STOMATITIS [None]
  - VOMITING [None]
